FAERS Safety Report 10897570 (Version 1)
Quarter: 2015Q1

REPORT INFORMATION
  Report Type: Spontaneous
  Country: IT (occurrence: IT)
  Receive Date: 20150309
  Receipt Date: 20150309
  Transmission Date: 20150721
  Serious: Yes (Other)
  Sender: FDA-Public Use
  Company Number: PHHY2015IT024294

PATIENT
  Age: 70 Year
  Sex: Female

DRUGS (3)
  1. METHYLPREDNISOLONE. [Suspect]
     Active Substance: METHYLPREDNISOLONE
     Indication: RHEUMATIC HEART DISEASE
     Route: 065
  2. METHOTREXATE [Suspect]
     Active Substance: METHOTREXATE
     Indication: RHEUMATIC HEART DISEASE
     Route: 065
  3. ADALIMUMAB [Suspect]
     Active Substance: ADALIMUMAB
     Indication: RHEUMATIC HEART DISEASE
     Route: 065

REACTIONS (11)
  - Fatigue [Unknown]
  - Erythema nodosum [Unknown]
  - Arthritis [Recovering/Resolving]
  - Lymphadenopathy [Unknown]
  - Lyme disease [Unknown]
  - Endocarditis [Unknown]
  - Pyrexia [Recovered/Resolved]
  - Pancytopenia [Unknown]
  - Skin lesion [Recovering/Resolving]
  - Q fever [Unknown]
  - Chills [Unknown]
